FAERS Safety Report 19019267 (Version 1)
Quarter: 2021Q1

REPORT INFORMATION
  Report Type: Report from Study
  Country: DE (occurrence: DE)
  Receive Date: 20210316
  Receipt Date: 20210316
  Transmission Date: 20210420
  Serious: Yes (Hospitalization, Other)
  Sender: FDA-Public Use
  Company Number: DE-INCYTE CORPORATION-2019IN001898

PATIENT

DRUGS (8)
  1. BELOC ZOK [Concomitant]
     Active Substance: METOPROLOL SUCCINATE
     Dosage: 47.5 MG, QD
     Route: 048
     Dates: start: 20170504
  2. CANDESARTAN. [Concomitant]
     Active Substance: CANDESARTAN
     Indication: HYPERTENSION
     Dosage: 16 MG, QD
     Route: 048
  3. JAKAVI [Suspect]
     Active Substance: RUXOLITINIB
     Indication: POLYCYTHAEMIA VERA
     Dosage: 10 MG, QD
     Route: 048
     Dates: start: 20160824, end: 20190411
  4. ATACAND [Concomitant]
     Active Substance: CANDESARTAN CILEXETIL
     Dosage: 8 MG, QD
     Route: 048
     Dates: start: 20170504, end: 201904
  5. METOPROLOL. [Concomitant]
     Active Substance: METOPROLOL
     Indication: HYPERTENSION
     Dosage: 95 MG, QD
     Route: 048
  6. ATACAND [Concomitant]
     Active Substance: CANDESARTAN CILEXETIL
     Indication: HYPERTENSION
     Dosage: 16 MG, QD
     Route: 048
     Dates: start: 20040322, end: 20170504
  7. BELOC ZOK [Concomitant]
     Active Substance: METOPROLOL SUCCINATE
     Indication: HYPERTENSION
     Dosage: 95 MG, QD
     Route: 048
     Dates: start: 20040322, end: 20170504
  8. DEKRISTOL [Concomitant]
     Active Substance: CHOLECALCIFEROL
     Indication: OSTEOPOROSIS PROPHYLAXIS
     Dosage: 20000 IU, Q2W
     Route: 048
     Dates: start: 20160112

REACTIONS (13)
  - Skin necrosis [Recovering/Resolving]
  - Venous thrombosis limb [Unknown]
  - General physical health deterioration [Not Recovered/Not Resolved]
  - Hypokalaemia [Recovered/Resolved]
  - Disturbance in attention [Recovered/Resolved]
  - Anaemia [Recovering/Resolving]
  - Depression [Recovering/Resolving]
  - Hyponatraemia [Recovered/Resolved]
  - Clostridium difficile colitis [Recovered/Resolved]
  - Inappropriate schedule of product administration [Unknown]
  - Pneumonia aspiration [Recovered/Resolved]
  - Thrombocytopenia [Recovering/Resolving]
  - Urethral polyp [Recovered/Resolved]

NARRATIVE: CASE EVENT DATE: 20160824
